FAERS Safety Report 8344437-7 (Version None)
Quarter: 2012Q1

REPORT INFORMATION
  Report Type: 
  Country: None (occurrence: None)
  Receive Date: 20120315
  Receipt Date: 20110518
  Transmission Date: 20120608
  Serious: No
  Sender: FDA-Public Use
  Company Number: PHHY2011US40228

PATIENT
  Age: 40 Year
  Sex: Male

DRUGS (4)
  1. GILENYA [Suspect]
     Indication: RELAPSING-REMITTING MULTIPLE SCLEROSIS
     Dosage: 0.5 MG, QD, ORAL
     Route: 048
     Dates: start: 20110325
  2. ANTI-CONVULSANT [Concomitant]
  3. AMPYRA [Concomitant]
  4. NEURONTIN [Concomitant]

REACTIONS (1)
  - SKIN IRRITATION [None]
